FAERS Safety Report 5823156-2 (Version None)
Quarter: 2008Q3

REPORT INFORMATION
  Report Type: 
  Country: None (occurrence: None)
  Receive Date: 20080725
  Receipt Date: 20080716
  Transmission Date: 20090109
  Serious: Yes (Other)
  Sender: FDA-Public Use
  Company Number: PHHY2008JP14412

PATIENT
  Age: 76 Year
  Sex: Female

DRUGS (2)
  1. ZOMETA [Suspect]
     Route: 042
  2. AREDIA [Suspect]

REACTIONS (1)
  - OSTEONECROSIS [None]
